FAERS Safety Report 8339303-7 (Version None)
Quarter: 2012Q2

REPORT INFORMATION
  Report Type: 
  Country: None (occurrence: None)
  Receive Date: 20120502
  Receipt Date: 20010426
  Transmission Date: 20120825
  Serious: Yes (Hospitalization, Other)
  Sender: FDA-Public Use
  Company Number: DAV-AE-MTX-12-41

PATIENT
  Age: 3 Year
  Sex: Male

DRUGS (2)
  1. METHOTREXATE [Suspect]
     Indication: T-CELL TYPE ACUTE LEUKAEMIA
     Dosage: 20 MG/M2/WK,
  2. MERCAPTOPURINE [Concomitant]

REACTIONS (7)
  - GASTROENTERITIS CRYPTOSPORIDIAL [None]
  - CHOLANGITIS [None]
  - DECREASED APPETITE [None]
  - APATHY [None]
  - HAEMATEMESIS [None]
  - LYMPHOPENIA [None]
  - WEIGHT DECREASED [None]
